FAERS Safety Report 6642069-X (Version None)
Quarter: 2010Q1

REPORT INFORMATION
  Report Type: 
  Country: None (occurrence: None)
  Receive Date: 20100319
  Receipt Date: 20100315
  Transmission Date: 20100710
  Serious: Yes (Death)
  Sender: FDA-Public Use
  Company Number: PHEH2010US03057

PATIENT
  Sex: Male
  Weight: 92.971 kg

DRUGS (9)
  1. GLEEVEC [Suspect]
     Indication: CHRONIC MYELOID LEUKAEMIA
     Dosage: 200 MG, BID
     Route: 048
     Dates: start: 20081001
  2. COUMADIN [Concomitant]
  3. GLIMEPIRIDE [Concomitant]
  4. HYDROCHLOROTHIAZIDE [Concomitant]
  5. LOPRESSOR [Concomitant]
  6. CRESTOR [Concomitant]
  7. FOLATE SODIUM [Concomitant]
  8. POTASSIUM CHLORIDE [Concomitant]
  9. NORVASC [Concomitant]

REACTIONS (2)
  - APNOEA [None]
  - CARDIAC ARREST [None]
